FAERS Safety Report 7884413-1 (Version None)
Quarter: 2011Q4

REPORT INFORMATION
  Report Type: 
  Country: None (occurrence: None)
  Receive Date: 20111102
  Receipt Date: 20110901
  Transmission Date: 20120403
  Serious: No
  Sender: FDA-Public Use
  Company Number: US-ASTRAZENECA-2011SE48636

PATIENT
  Age: 30297 Day
  Sex: Male

DRUGS (7)
  1. GABAPENTIN [Concomitant]
  2. FLOMAX [Concomitant]
  3. BENADRYL [Concomitant]
  4. IMODIUM [Concomitant]
  5. VANDETANIB [Suspect]
     Indication: THYROID CANCER
     Route: 048
  6. ATENOLOL [Concomitant]
  7. METFORMIN HCL [Concomitant]

REACTIONS (4)
  - INCREASED UPPER AIRWAY SECRETION [None]
  - RASH [None]
  - JOINT STIFFNESS [None]
  - DYSPHONIA [None]
